FAERS Safety Report 15655230 (Version 1)
Quarter: 2018Q4

REPORT INFORMATION
  Report Type: Spontaneous
  Country: US (occurrence: US)
  Receive Date: 20181114
  Receipt Date: 20181114
  Transmission Date: 20190205
  Serious: No
  Sender: FDA-Public Use
  Company Number: None

PATIENT
  Age: 62 Year
  Sex: Female

DRUGS (1)
  1. CAPECITABINE 500MG TAB [Suspect]
     Active Substance: CAPECITABINE
     Indication: COLON CANCER
     Dosage: ?          OTHER FREQUENCY:DAY 1-14/EVERY 21 ;?
     Route: 048

REACTIONS (3)
  - Diarrhoea [None]
  - Dehydration [None]
  - Mucosal ulceration [None]

NARRATIVE: CASE EVENT DATE: 201810
